FAERS Safety Report 25626199 (Version 1)
Quarter: 2025Q3

REPORT INFORMATION
  Report Type: Spontaneous
  Country: EU (occurrence: EU)
  Receive Date: 20250731
  Receipt Date: 20250731
  Transmission Date: 20251020
  Serious: Yes (Death, Other)
  Sender: MANKIND PHARMA
  Company Number: EU-MankindUS-000440

PATIENT
  Age: 19 Year
  Sex: Female

DRUGS (5)
  1. ATROPINE SULFATE [Suspect]
     Active Substance: ATROPINE SULFATE
  2. AMPHETAMINE [Suspect]
     Active Substance: AMPHETAMINE
  3. QUETIAPINE [Suspect]
     Active Substance: QUETIAPINE
  4. ETHYL ALCOHOL [Suspect]
     Active Substance: ALCOHOL
  5. SODIUM NITRATE [Suspect]
     Active Substance: SODIUM NITRATE

REACTIONS (3)
  - Multiple organ dysfunction syndrome [Fatal]
  - Intentional overdose [Fatal]
  - Completed suicide [Fatal]
